FAERS Safety Report 5625576-8 (Version None)
Quarter: 2008Q1

REPORT INFORMATION
  Report Type: 
  Country: None (occurrence: None)
  Receive Date: 20080214
  Receipt Date: 20080117
  Transmission Date: 20080703
  Serious: No
  Sender: FDA-Public Use
  Company Number: US-BAYER-200811648NA

PATIENT
  Age: 39 Year
  Sex: Male
  Weight: 58 kg

DRUGS (2)
  1. MIRENA [Suspect]
     Indication: MENORRHAGIA
     Route: 015
     Dates: start: 20070301
  2. MINOCYCLINE HCL [Concomitant]
     Indication: ACNE
     Dates: start: 20040101

REACTIONS (1)
  - GENITAL PAIN [None]
